FAERS Safety Report 24157690 (Version 1)
Quarter: 2024Q3

REPORT INFORMATION
  Report Type: Spontaneous
  Country: FR (occurrence: FR)
  Receive Date: 20240731
  Receipt Date: 20240731
  Transmission Date: 20241017
  Serious: Yes (Death)
  Sender: TEVA
  Company Number: None

PATIENT
  Age: 55 Year
  Sex: Female
  Weight: 88 kg

DRUGS (2)
  1. AMOXICILLIN [Suspect]
     Active Substance: AMOXICILLIN
     Indication: Tonsillitis
     Dosage: AMOXICILLINE
     Route: 048
     Dates: start: 20240526, end: 20240527
  2. VOLTARENE [Concomitant]
     Indication: Tonsillitis
     Route: 048

REACTIONS (3)
  - Cardio-respiratory arrest [Fatal]
  - Pharyngeal abscess [Fatal]
  - Respiratory distress [Fatal]

NARRATIVE: CASE EVENT DATE: 20240527
